FAERS Safety Report 9133632 (Version 1)
Quarter: 2013Q1

REPORT INFORMATION
  Report Type: Report from Study
  Country: US (occurrence: US)
  Receive Date: 20130125
  Receipt Date: 20130125
  Transmission Date: 20140127
  Serious: Yes (Other)
  Sender: FDA-Public Use
  Company Number: US-ROCHE-1182167

PATIENT
  Sex: 0

DRUGS (5)
  1. INTERFERON ALFA-2A [Suspect]
     Indication: MALIGNANT MELANOMA
     Dosage: 5 MU/ME2 OVER 4 DAYS
     Route: 058
  2. CISPLATIN [Suspect]
     Indication: MALIGNANT MELANOMA
     Dosage: OVER 1 H ON DAYS 1 - 4
     Route: 042
  3. DACARBAZINE [Suspect]
     Indication: MALIGNANT MELANOMA
     Dosage: OVER 1 H ON DAY 1 ONLY
     Route: 042
  4. VINBLASTINE [Suspect]
     Indication: MALIGNANT MELANOMA
     Dosage: ON DAYS 1 - 4
     Route: 042
  5. ALDESLEUKIN\INTERLEUKIN-2 SELECTIVE AGONIST [Suspect]
     Indication: MALIGNANT MELANOMA
     Dosage: 29MU/ME2
     Route: 042

REACTIONS (6)
  - Haematotoxicity [Unknown]
  - Nephropathy toxic [Unknown]
  - Influenza like illness [None]
  - Blood pressure abnormal [None]
  - Medical device complication [None]
  - Toxicity to various agents [None]
